FAERS Safety Report 4561784-5 (Version None)
Quarter: 2005Q1

REPORT INFORMATION
  Report Type: 
  Country: None (occurrence: None)
  Receive Date: 20050125
  Receipt Date: 20050113
  Transmission Date: 20050727
  Serious: Yes (Death, Hospitalization, Other)
  Sender: FDA-Public Use
  Company Number: 2005013502

PATIENT
  Age: 75 Year
  Sex: Male
  Weight: 84.369 kg

DRUGS (2)
  1. LIPITOR [Suspect]
     Indication: BLOOD CHOLESTEROL INCREASED
     Dosage: 10 MG, EVERY OTHER DAY, ORAL
     Route: 048
     Dates: end: 20040801
  2. ANTIHYPERTENSIVES (ANTIHYPERTENSIVES) [Concomitant]

REACTIONS (10)
  - ARTHRITIS [None]
  - BACK PAIN [None]
  - BLOOD PRESSURE DECREASED [None]
  - CEREBROVASCULAR ACCIDENT [None]
  - CONFUSIONAL STATE [None]
  - DELIRIUM [None]
  - LOSS OF CONSCIOUSNESS [None]
  - SLUGGISHNESS [None]
  - SMALL CELL LUNG CANCER STAGE UNSPECIFIED [None]
  - WEIGHT DECREASED [None]
